FAERS Safety Report 25660702 (Version 1)
Quarter: 2025Q3

REPORT INFORMATION
  Report Type: Spontaneous
  Country: US (occurrence: US)
  Receive Date: 20250808
  Receipt Date: 20250808
  Transmission Date: 20251021
  Serious: No
  Sender: ANI
  Company Number: US-ANIPHARMA-2024-US-068997

PATIENT
  Age: 40 Year
  Sex: Female

DRUGS (11)
  1. CORTICOTROPIN [Suspect]
     Active Substance: CORTICOTROPIN
     Indication: Rheumatoid arthritis
     Route: 058
  2. OMEPRAZOLE [Concomitant]
     Active Substance: OMEPRAZOLE
  3. GLUCOSAMINE/CHONDROITIN M [Concomitant]
  4. FISH OIL [Concomitant]
     Active Substance: FISH OIL
  5. B12 [Concomitant]
  6. VITAMIN D2 [Concomitant]
     Active Substance: ERGOCALCIFEROL
  7. MULLEIN GARLIC EAR DROPS [Concomitant]
  8. CRANBERRY URINARY COMFORT [Concomitant]
  9. MULTIVITAMIN WOMEN [Concomitant]
  10. CABERGOLINE [Concomitant]
     Active Substance: CABERGOLINE
  11. LEVOTHYROXINE SODIUM [Concomitant]
     Active Substance: LEVOTHYROXINE SODIUM

REACTIONS (3)
  - Injection site bruising [Recovered/Resolved]
  - Injection site erythema [Recovered/Resolved]
  - Injection site swelling [Recovered/Resolved]
